FAERS Safety Report 6166894-7 (Version None)
Quarter: 2009Q2

REPORT INFORMATION
  Report Type: 
  Country: None (occurrence: None)
  Receive Date: 20090424
  Receipt Date: 20090417
  Transmission Date: 20091009
  Serious: Yes (Hospitalization)
  Sender: FDA-Public Use
  Company Number: B0570286A

PATIENT
  Age: 31 Year
  Sex: Male
  Weight: 95 kg

DRUGS (3)
  1. ROPINIROLE [Suspect]
     Indication: RESTLESS LEGS SYNDROME
     Route: 048
     Dates: start: 20090301, end: 20090330
  2. VENTOLIN [Concomitant]
     Indication: ASTHMA
     Route: 055
  3. CLENIL MODULITE [Concomitant]
     Indication: ASTHMA
     Dates: start: 20080501

REACTIONS (3)
  - HEADACHE [None]
  - LIBIDO INCREASED [None]
  - ORGASM ABNORMAL [None]
